FAERS Safety Report 25623094 (Version 1)
Quarter: 2025Q3

REPORT INFORMATION
  Report Type: Spontaneous
  Country: CA (occurrence: CA)
  Receive Date: 20250730
  Receipt Date: 20250730
  Transmission Date: 20251020
  Serious: Yes (Death)
  Sender: ALEXION PHARMACEUTICALS
  Company Number: CA-ASTRAZENECA-202507GLO024775CA

PATIENT
  Age: 76 Year
  Sex: Female

DRUGS (5)
  1. ANDEXXA [Suspect]
     Active Substance: ANDEXANET ALFA
     Indication: Coagulopathy
  2. APIXABAN [Concomitant]
     Active Substance: APIXABAN
     Indication: Atrial fibrillation
     Route: 065
  3. EPINEPHRINE [Concomitant]
     Active Substance: EPINEPHRINE
     Indication: Left ventricular failure
     Route: 065
  4. PROTAMINE [Concomitant]
     Active Substance: PROTAMINE
     Indication: Product used for unknown indication
     Route: 065
  5. HEPARIN [Concomitant]
     Active Substance: HEPARIN SODIUM
     Indication: Product used for unknown indication
     Route: 065

REACTIONS (1)
  - Cardiac ventricular thrombosis [Fatal]
